FAERS Safety Report 20409007 (Version 6)
Quarter: 2024Q1

REPORT INFORMATION
  Report Type: Report from Study
  Country: JP (occurrence: JP)
  Receive Date: 20220201
  Receipt Date: 20240214
  Transmission Date: 20240410
  Serious: Yes (Hospitalization, Other)
  Sender: FDA-Public Use
  Company Number: JP-ASTELLAS-2022JP001260

PATIENT
  Age: 75 Year
  Sex: Male

DRUGS (35)
  1. ENFORTUMAB VEDOTIN [Suspect]
     Active Substance: ENFORTUMAB VEDOTIN
     Indication: Metastatic carcinoma of the bladder
     Route: 041
     Dates: start: 20220107, end: 20220114
  2. CALSLOT [Concomitant]
     Active Substance: MANIDIPINE HYDROCHLORIDE
     Indication: Product used for unknown indication
     Dosage: UNK UNK, UNKNOWN FREQ.
     Route: 065
     Dates: start: 20160509, end: 20220126
  3. LEVOTHYROXINE [Concomitant]
     Active Substance: LEVOTHYROXINE\LEVOTHYROXINE SODIUM
     Indication: Product used for unknown indication
     Dosage: UNK UNK, UNKNOWN FREQ.
     Route: 065
     Dates: start: 20190813, end: 20220210
  4. VALSARTAN [Concomitant]
     Active Substance: VALSARTAN
     Indication: Product used for unknown indication
     Dosage: UNK UNK, UNKNOWN FREQ.
     Route: 065
     Dates: start: 20191107, end: 20220201
  5. FUROSEMIDE [Concomitant]
     Active Substance: FUROSEMIDE
     Indication: Product used for unknown indication
     Dosage: UNK UNK, UNKNOWN FREQ.
     Route: 065
     Dates: start: 20200227, end: 20220204
  6. ATORVASTATIN [Concomitant]
     Active Substance: ATORVASTATIN
     Indication: Product used for unknown indication
     Dosage: UNK UNK, UNKNOWN FREQ.
     Route: 065
     Dates: start: 20200309, end: 20220210
  7. PREDNISOLONE [Concomitant]
     Active Substance: PREDNISOLONE
     Indication: Product used for unknown indication
     Dosage: UNK UNK, UNKNOWN FREQ.
     Route: 065
     Dates: start: 20200309
  8. ACTONEL [Concomitant]
     Active Substance: RISEDRONATE SODIUM
     Indication: Osteoporosis prophylaxis
     Route: 048
     Dates: start: 20200318, end: 20220209
  9. DAPAGLIFLOZIN [Concomitant]
     Active Substance: DAPAGLIFLOZIN
     Indication: Product used for unknown indication
     Dosage: UNK UNK, UNKNOWN FREQ.
     Route: 065
     Dates: start: 20201021
  10. IMURAN [Concomitant]
     Active Substance: AZATHIOPRINE
     Indication: Product used for unknown indication
     Dosage: UNK UNK, UNKNOWN FREQ.
     Route: 065
     Dates: start: 20210412, end: 20220210
  11. SULFAMETHOXAZOLE\TRIMETHOPRIM [Concomitant]
     Active Substance: SULFAMETHOXAZOLE\TRIMETHOPRIM
     Indication: Infection prophylaxis
     Route: 048
     Dates: start: 20220104, end: 20220115
  12. SULFAMETHOXAZOLE\TRIMETHOPRIM [Concomitant]
     Active Substance: SULFAMETHOXAZOLE\TRIMETHOPRIM
     Route: 048
     Dates: start: 20220131, end: 20220205
  13. BENZBROMARONE [Concomitant]
     Active Substance: BENZBROMARONE
     Indication: Product used for unknown indication
     Dosage: UNK UNK, UNKNOWN FREQ.
     Route: 065
     Dates: start: 20220114, end: 20220202
  14. PIPERACILLIN SODIUM\TAZOBACTAM SODIUM [Concomitant]
     Active Substance: PIPERACILLIN SODIUM\TAZOBACTAM SODIUM
     Indication: Pyelonephritis
     Route: 065
     Dates: start: 20220119, end: 20220119
  15. PIPERACILLIN SODIUM\TAZOBACTAM SODIUM [Concomitant]
     Active Substance: PIPERACILLIN SODIUM\TAZOBACTAM SODIUM
     Route: 065
     Dates: start: 20220120, end: 20220121
  16. PIPERACILLIN SODIUM\TAZOBACTAM SODIUM [Concomitant]
     Active Substance: PIPERACILLIN SODIUM\TAZOBACTAM SODIUM
     Route: 065
     Dates: start: 20220126, end: 20220126
  17. CALONAL [Concomitant]
     Active Substance: ACETAMINOPHEN
     Indication: Pyrexia
     Route: 048
     Dates: start: 20220120, end: 20220222
  18. MEROPENEM [Concomitant]
     Active Substance: MEROPENEM
     Indication: Pyelonephritis
     Route: 065
     Dates: start: 20220121, end: 20220121
  19. MEROPENEM [Concomitant]
     Active Substance: MEROPENEM
     Indication: Infection prophylaxis
     Route: 065
     Dates: start: 20220122, end: 20220125
  20. MEROPENEM [Concomitant]
     Active Substance: MEROPENEM
     Route: 065
     Dates: start: 20220204, end: 20220204
  21. MEROPENEM [Concomitant]
     Active Substance: MEROPENEM
     Route: 065
     Dates: start: 20220205, end: 20220208
  22. MEROPENEM [Concomitant]
     Active Substance: MEROPENEM
     Route: 065
     Dates: start: 20220209, end: 20220209
  23. MEROPENEM [Concomitant]
     Active Substance: MEROPENEM
     Route: 065
     Dates: start: 20220210, end: 20220221
  24. ACETAMINOPHEN [Concomitant]
     Active Substance: ACETAMINOPHEN
     Indication: Pyrexia
     Route: 065
     Dates: start: 20220125, end: 20220220
  25. DEXAMETHASONE [Concomitant]
     Active Substance: DEXAMETHASONE
     Indication: Oral candidiasis
     Dosage: ADEQUATE DOSE, TWICE DAILY
     Route: 065
     Dates: start: 20220130, end: 20220202
  26. FUNGIZONE [Concomitant]
     Active Substance: AMPHOTERICIN B
     Indication: Oral candidiasis
     Route: 048
     Dates: start: 20220203, end: 20220210
  27. ZINC [Concomitant]
     Active Substance: PYRITHIONE ZINC\ZINC\ZINC CHLORIDE
     Indication: Hypozincaemia
     Route: 048
     Dates: start: 20220204, end: 20220210
  28. TEICOPLANIN [Concomitant]
     Active Substance: TEICOPLANIN
     Indication: Infection prophylaxis
     Route: 065
     Dates: start: 20220209, end: 20220209
  29. TEICOPLANIN [Concomitant]
     Active Substance: TEICOPLANIN
     Route: 065
     Dates: start: 20220210, end: 20220210
  30. TEICOPLANIN [Concomitant]
     Active Substance: TEICOPLANIN
     Route: 065
     Dates: start: 20220211, end: 20220221
  31. Denosine [Concomitant]
     Indication: Cytomegalovirus enterocolitis
     Route: 065
     Dates: start: 20220210, end: 20220216
  32. Denosine [Concomitant]
     Route: 065
     Dates: start: 20220217, end: 20220218
  33. Denosine [Concomitant]
     Route: 065
     Dates: start: 20220219, end: 20220228
  34. Denosine [Concomitant]
     Route: 065
     Dates: start: 20220301, end: 20220311
  35. VENOGLOBULIN IH [Concomitant]
     Active Substance: HUMAN IMMUNOGLOBULIN G
     Indication: Hypogammaglobulinaemia
     Route: 065
     Dates: start: 20220210, end: 20220210

REACTIONS (14)
  - Pyrexia [Recovered/Resolved]
  - Myelosuppression [Recovered/Resolved]
  - Pyelonephritis [Recovered/Resolved]
  - Decreased appetite [Recovered/Resolved]
  - Anaemia [Recovered/Resolved]
  - White blood cell count decreased [Recovered/Resolved]
  - Alopecia [Unknown]
  - Oral candidiasis [Recovering/Resolving]
  - Hypozincaemia [Not Recovered/Not Resolved]
  - Cytomegalovirus enterocolitis [Recovered/Resolved]
  - Hypogammaglobulinaemia [Not Recovered/Not Resolved]
  - Haemophagocytic lymphohistiocytosis [Recovering/Resolving]
  - Hypophosphataemia [Recovering/Resolving]
  - Dyspnoea [Recovering/Resolving]

NARRATIVE: CASE EVENT DATE: 20220118
